FAERS Safety Report 25849902 (Version 1)
Quarter: 2025Q3

REPORT INFORMATION
  Report Type: Spontaneous
  Country: JP (occurrence: JP)
  Receive Date: 20250926
  Receipt Date: 20250926
  Transmission Date: 20251021
  Serious: Yes (Other)
  Sender: ARGENX BVBA
  Company Number: JP-ARGENX-2024-ARGX-JP012000AA

PATIENT

DRUGS (16)
  1. PREDONINE [Suspect]
     Active Substance: PREDNISOLONE
     Indication: Product used for unknown indication
     Route: 048
  2. EFGARTIGIMOD ALFA\HYALURONIDASE-QVFC [Suspect]
     Active Substance: EFGARTIGIMOD ALFA\HYALURONIDASE-QVFC
     Indication: Myasthenia gravis
     Route: 058
     Dates: start: 20241226
  3. ALENDRONATE [Concomitant]
     Active Substance: ALENDRONATE SODIUM
     Indication: Product used for unknown indication
     Dosage: 35 MG, 1/WEEK
     Route: 048
  4. BELSOMRA [Concomitant]
     Active Substance: SUVOREXANT
     Indication: Circadian rhythm sleep disorder
     Route: 048
  5. BISOPROLOL FUMARATE [Concomitant]
     Active Substance: BISOPROLOL FUMARATE
     Indication: Product used for unknown indication
     Route: 048
  6. CALONAL [Concomitant]
     Active Substance: ACETAMINOPHEN
     Indication: Product used for unknown indication
     Route: 065
  7. ESZOPICLONE [Concomitant]
     Active Substance: ESZOPICLONE
     Indication: Product used for unknown indication
     Route: 048
  8. GLYCOSAMINOGLYCANS [Concomitant]
     Active Substance: GLYCOSAMINOGLYCANS
     Indication: Decubitus ulcer
     Route: 003
  9. GLYCOSAMINOGLYCANS [Concomitant]
     Active Substance: GLYCOSAMINOGLYCANS
     Indication: Product used for unknown indication
     Route: 003
  10. UREA [Concomitant]
     Active Substance: UREA
     Indication: Product used for unknown indication
     Route: 003
  11. EDOXABAN TOSYLATE [Concomitant]
     Active Substance: EDOXABAN TOSYLATE
     Indication: Product used for unknown indication
     Route: 048
  12. LUNESTA [Concomitant]
     Active Substance: ESZOPICLONE
     Indication: Circadian rhythm sleep disorder
     Route: 048
  13. ESAXERENONE [Concomitant]
     Active Substance: ESAXERENONE
     Indication: Product used for unknown indication
     Route: 048
  14. PILSICAINIDE HYDROCHLORIDE [Concomitant]
     Active Substance: PILSICAINIDE HYDROCHLORIDE
     Indication: Product used for unknown indication
     Route: 048
  15. TACROLIMUS [Concomitant]
     Active Substance: TACROLIMUS
     Indication: Product used for unknown indication
     Route: 048
  16. TRAMADOL [Concomitant]
     Active Substance: TRAMADOL
     Indication: Product used for unknown indication
     Route: 065

REACTIONS (30)
  - Otitis media chronic [Unknown]
  - Physical deconditioning [Recovered/Resolved]
  - Back pain [Unknown]
  - Decubitus ulcer [Recovering/Resolving]
  - General physical health deterioration [Unknown]
  - Malaise [Recovered/Resolved]
  - Dysphonia [Not Recovered/Not Resolved]
  - Visual acuity reduced [Unknown]
  - Dysphagia [Unknown]
  - Muscular weakness [Unknown]
  - Electrocardiogram abnormal [Unknown]
  - Pain in extremity [Unknown]
  - Gait disturbance [Recovering/Resolving]
  - Muscular weakness [Unknown]
  - Injection site haemorrhage [Unknown]
  - Injection site haemorrhage [Recovered/Resolved]
  - Tremor [Unknown]
  - Wrong technique in product usage process [Unknown]
  - Impaired healing [Unknown]
  - Malaise [Unknown]
  - Grip strength decreased [Unknown]
  - Fatigue [Unknown]
  - Injection site pain [Unknown]
  - Injection site pain [Recovering/Resolving]
  - Injection site pain [Recovered/Resolved]
  - Injection site pain [Unknown]
  - Injection site pain [Unknown]
  - Injection site pain [Unknown]
  - Injection site pain [Recovered/Resolved]
  - Fatigue [Unknown]

NARRATIVE: CASE EVENT DATE: 20241227
